FAERS Safety Report 17546297 (Version 3)
Quarter: 2020Q2

REPORT INFORMATION
  Report Type: Other
  Country: CH (occurrence: FR)
  Receive Date: 20200316
  Receipt Date: 20200528
  Transmission Date: 20200713
  Serious: Yes (Death, Other)
  Sender: FDA-Public Use
  Company Number: FR-ASTELLAS-2020US009844

PATIENT
  Age: 5 Year
  Sex: Female
  Weight: 23 kg

DRUGS (4)
  1. BACTRIM [Concomitant]
     Active Substance: SULFAMETHOXAZOLE\TRIMETHOPRIM
     Indication: PROPHYLAXIS
     Dosage: 257 MG (1800 MG), ONCE WEEKLY
     Route: 048
  2. KEPPRA [Concomitant]
     Active Substance: LEVETIRACETAM
     Indication: MYOCLONUS
     Route: 048
  3. ISAVUCONAZOLE [Suspect]
     Active Substance: ISAVUCONAZOLE
     Indication: PULMONARY MUCORMYCOSIS
     Route: 048
     Dates: start: 20191121, end: 20200221
  4. LORVIQUA [Suspect]
     Active Substance: LORLATINIB
     Indication: ANAPLASTIC LARGE-CELL LYMPHOMA
     Route: 048
     Dates: start: 20191121, end: 20200221

REACTIONS (7)
  - Cardio-respiratory arrest [Fatal]
  - Diabetic ketoacidosis [Fatal]
  - Hyperglycaemia [Fatal]
  - Product use issue [Unknown]
  - Abdominal pain [Fatal]
  - Polydipsia [Fatal]
  - Hyperkalaemia [Fatal]

NARRATIVE: CASE EVENT DATE: 20200220
